FAERS Safety Report 10315014 (Version 1)
Quarter: 2014Q3

REPORT INFORMATION
  Report Type: Spontaneous
  Country: US (occurrence: US)
  Receive Date: 20140718
  Receipt Date: 20140718
  Transmission Date: 20150326
  Serious: Yes (Disabling, Other)
  Sender: FDA-Public Use
  Company Number: US-009507513-1407USA007070

PATIENT
  Age: 63 Year
  Sex: Female
  Weight: 108.84 kg

DRUGS (1)
  1. JANUVIA [Suspect]
     Active Substance: SITAGLIPTIN PHOSPHATE
     Indication: TYPE 2 DIABETES MELLITUS
     Dosage: 1 TABLET, ONCE PER DAY
     Route: 048
     Dates: start: 20091201, end: 20101201

REACTIONS (6)
  - Diarrhoea [Unknown]
  - Poor quality sleep [Unknown]
  - Fluid retention [Unknown]
  - Pruritus [Unknown]
  - Food intolerance [Unknown]
  - Constipation [Unknown]

NARRATIVE: CASE EVENT DATE: 200912
